FAERS Safety Report 5827425-1 (Version None)
Quarter: 2008Q3

REPORT INFORMATION
  Report Type: 
  Country: None (occurrence: None)
  Receive Date: 20080730
  Receipt Date: 20080724
  Transmission Date: 20090109
  Serious: Yes (Other)
  Sender: FDA-Public Use
  Company Number: DE-TEVA-174877ISR

PATIENT

DRUGS (4)
  1. METHOTREXATE [Suspect]
  2. ABACAVIR SULFATE/LAMIVUDINE [Suspect]
  3. TRUVADA [Suspect]
  4. ATAZANAVIR SULFATE [Suspect]

REACTIONS (2)
  - DRUG INTERACTION [None]
  - RENAL FAILURE [None]
